FAERS Safety Report 11885388 (Version 1)
Quarter: 2016Q1

REPORT INFORMATION
  Report Type: Report from Study
  Country: KR (occurrence: KR)
  Receive Date: 20160104
  Receipt Date: 20160104
  Transmission Date: 20160526
  Serious: Yes (Death)
  Sender: FDA-Public Use
  Company Number: KR-SA-2015SA222924

PATIENT

DRUGS (1)
  1. DOCETAXEL. [Suspect]
     Active Substance: DOCETAXEL
     Indication: TRANSITIONAL CELL CARCINOMA
     Dosage: 1 HR INFUSION; ON DAYS 1 AND 8
     Route: 065

REACTIONS (1)
  - Subdural haemorrhage [Fatal]
